FAERS Safety Report 9840216 (Version 2)
Quarter: 2014Q1

REPORT INFORMATION
  Report Type: Spontaneous
  Country: DE (occurrence: DE)
  Receive Date: 20140124
  Receipt Date: 20140124
  Transmission Date: 20141002
  Serious: Yes (Other)
  Sender: FDA-Public Use
  Company Number: DE-JNJFOC-20131210764

PATIENT
  Age: 60 Year
  Sex: Female
  Weight: 89.98 kg

DRUGS (7)
  1. XARELTO [Suspect]
     Indication: EMBOLISM VENOUS
     Route: 048
     Dates: start: 20130909, end: 20131030
  2. XARELTO [Suspect]
     Indication: THROMBOPHLEBITIS
     Route: 048
     Dates: start: 20130909, end: 20131030
  3. XARELTO [Suspect]
     Indication: THROMBOSIS
     Route: 048
     Dates: start: 20130909, end: 20131030
  4. CIPRALEX [Concomitant]
     Route: 065
  5. ASS [Concomitant]
  6. VERAHEXAL [Concomitant]
     Route: 065
  7. JODID [Concomitant]
     Route: 065

REACTIONS (5)
  - Asthenia [Recovered/Resolved]
  - Personality change [Recovered/Resolved]
  - Dizziness [Recovered/Resolved]
  - Mental disorder [Recovered/Resolved]
  - Asthenia [Recovered/Resolved]
